FAERS Safety Report 23912675 (Version 3)
Quarter: 2024Q4

REPORT INFORMATION
  Report Type: Report from Study
  Country: US (occurrence: US)
  Receive Date: 20240529
  Receipt Date: 20241230
  Transmission Date: 20250114
  Serious: Yes (Other)
  Sender: ABBVIE
  Company Number: US-ABBVIE-5677443

PATIENT
  Age: 73 Year
  Sex: Male

DRUGS (2)
  1. RINVOQ [Suspect]
     Active Substance: UPADACITINIB
     Indication: Psoriatic arthropathy
     Route: 048
     Dates: start: 20231205, end: 20240420
  2. RINVOQ [Suspect]
     Active Substance: UPADACITINIB
     Indication: Psoriatic arthropathy
     Route: 048
     Dates: start: 2023, end: 2023

REACTIONS (2)
  - Osteoarthritis [Recovering/Resolving]
  - Osteoarthritis [Recovering/Resolving]

NARRATIVE: CASE EVENT DATE: 20231201
